FAERS Safety Report 25954876 (Version 2)
Quarter: 2025Q4

REPORT INFORMATION
  Report Type: Spontaneous
  Country: US (occurrence: US)
  Receive Date: 20251024
  Receipt Date: 20251119
  Transmission Date: 20260118
  Serious: No
  Sender: AMGEN
  Company Number: US-AMGEN-USASP2025204644

PATIENT
  Age: 74 Year
  Sex: Male

DRUGS (2)
  1. REPATHA [Suspect]
     Active Substance: EVOLOCUMAB
     Indication: Product used for unknown indication
     Dosage: UNK
     Route: 065
     Dates: start: 202507
  2. LEPODISIRAN [Concomitant]
     Active Substance: LEPODISIRAN
     Dosage: UNK
     Route: 065

REACTIONS (1)
  - Lipoprotein (a) decreased [Unknown]

NARRATIVE: CASE EVENT DATE: 20250101
